FAERS Safety Report 4822551-8 (Version None)
Quarter: 2005Q4

REPORT INFORMATION
  Report Type: 
  Country: None (occurrence: None)
  Receive Date: 20051104
  Receipt Date: 20051104
  Transmission Date: 20060501
  Serious: Yes (Hospitalization, Other)
  Sender: FDA-Public Use
  Company Number: None

PATIENT
  Sex: Male
  Weight: 106.5 kg

DRUGS (4)
  1. CYTARABINE [Suspect]
     Indication: ACUTE LYMPHOCYTIC LEUKAEMIA
     Dosage: SEE IMAGE
     Dates: start: 20051019, end: 20051019
  2. DAUNORUBICIN [Suspect]
     Dosage: SEE IMAGE
     Dates: start: 20051019, end: 20051019
  3. PREDNISONE [Suspect]
     Dosage: SEE IMAGE
     Dates: start: 20051019, end: 20051021
  4. VINCRISTINE SULFATE [Suspect]
     Dosage: SEE IMAGE
     Dates: start: 20051019, end: 20051019

REACTIONS (1)
  - STATUS EPILEPTICUS [None]
